FAERS Safety Report 5388365-8 (Version None)
Quarter: 2007Q3

REPORT INFORMATION
  Report Type: 
  Country: None (occurrence: None)
  Receive Date: 20070716
  Receipt Date: 20070706
  Transmission Date: 20080115
  Serious: Yes (Hospitalization)
  Sender: FDA-Public Use
  Company Number: JP-ELI_LILLY_AND_COMPANY-JP200707000490

PATIENT
  Age: 52 Year
  Sex: Female
  Weight: 55.8 kg

DRUGS (2)
  1. GEMCITABINE HCL [Suspect]
     Indication: BILE DUCT CANCER
     Dosage: 1500 MG, OTHER
     Route: 042
     Dates: start: 20060929, end: 20060929
  2. UFT [Concomitant]
     Indication: BILE DUCT CANCER
     Dosage: 400 MG, UNKNOWN
     Route: 048
     Dates: start: 20060623, end: 20060822

REACTIONS (7)
  - HAEMATURIA [None]
  - ILEUS [None]
  - NAUSEA [None]
  - PANCYTOPENIA [None]
  - PERITONITIS [None]
  - PLEURAL EFFUSION [None]
  - SEPSIS [None]
